FAERS Safety Report 11780984 (Version 1)
Quarter: 2015Q4

REPORT INFORMATION
  Report Type: Report from Study
  Country: US (occurrence: US)
  Receive Date: 20151126
  Receipt Date: 20151126
  Transmission Date: 20160305
  Serious: Yes (Hospitalization, Other)
  Sender: FDA-Public Use
  Company Number: US-ROCHE-1667057

PATIENT
  Age: 55 Year
  Sex: Female

DRUGS (2)
  1. BEVACIZUMAB [Suspect]
     Active Substance: BEVACIZUMAB
     Indication: BREAST CANCER METASTATIC
     Dosage: OVER 30-90 MINUTES ON DAYS 1 AND 15 (DATE OF LAST DOSE PRIOR TO SAE: 11/MAY/2010)
     Route: 042
     Dates: start: 20100427
  2. IXABEPILONE [Suspect]
     Active Substance: IXABEPILONE
     Indication: BREAST CANCER METASTATIC
     Dosage: OVER 1 HOUR ON DAYS 1, 8 AND 15
     Route: 042
     Dates: start: 20100427

REACTIONS (2)
  - Pneumonitis [Unknown]
  - Lung infection [Unknown]

NARRATIVE: CASE EVENT DATE: 20100509
